FAERS Safety Report 13434725 (Version 1)
Quarter: 2017Q2

REPORT INFORMATION
  Report Type: Spontaneous
  Country: US (occurrence: US)
  Receive Date: 20170412
  Receipt Date: 20170412
  Transmission Date: 20170830
  Serious: Yes (Other)
  Sender: FDA-Public Use
  Company Number: US-SA-2016SA054454

PATIENT
  Age: 30 Year
  Sex: Male

DRUGS (2)
  1. ALLEGRA [Suspect]
     Active Substance: FEXOFENADINE HYDROCHLORIDE
     Indication: SNEEZING
     Dosage: FOR ABOUT 2 YEARS
     Route: 048
     Dates: end: 20160311
  2. ALLEGRA [Suspect]
     Active Substance: FEXOFENADINE HYDROCHLORIDE
     Indication: NASAL CONGESTION
     Dosage: FOR ABOUT 2 YEARS
     Route: 048
     Dates: end: 20160311

REACTIONS (3)
  - Drug ineffective [Unknown]
  - Sneezing [Unknown]
  - Nasal congestion [Unknown]
